FAERS Safety Report 7707084-3 (Version None)
Quarter: 2011Q3

REPORT INFORMATION
  Report Type: 
  Country: None (occurrence: None)
  Receive Date: 20110819
  Receipt Date: 20110805
  Transmission Date: 20111222
  Serious: Yes (Hospitalization)
  Sender: FDA-Public Use
  Company Number: TCI2008A06090

PATIENT
  Age: 71 Year
  Sex: Female

DRUGS (2)
  1. TAKEPRON (LANSOPRAZOLE) [Suspect]
     Indication: GASTRIC ULCER HAEMORRHAGE
     Dosage: 30 MG (30 MG, 1-2), 30 MG (30 MG, 1 D) PER ORAL
     Route: 048
     Dates: start: 20071001, end: 20080301
  2. SULINDAC [Suspect]
     Indication: RHEUMATOID ARTHRITIS
     Dosage: PER ORAL
     Route: 048

REACTIONS (8)
  - LARGE INTESTINAL ULCER [None]
  - SCAR [None]
  - HAEMATOCHEZIA [None]
  - HYPOALBUMINAEMIA [None]
  - COLITIS MICROSCOPIC [None]
  - ABDOMINAL PAIN LOWER [None]
  - WHITE BLOOD CELL COUNT INCREASED [None]
  - C-REACTIVE PROTEIN INCREASED [None]
